FAERS Safety Report 13602036 (Version 1)
Quarter: 2017Q2

REPORT INFORMATION
  Report Type: Spontaneous
  Country: AU (occurrence: AU)
  Receive Date: 20170601
  Receipt Date: 20170601
  Transmission Date: 20170830
  Serious: Yes (Hospitalization)
  Sender: FDA-Public Use
  Company Number: AU-LANNETT COMPANY, INC.-AU-2017LAN000807

PATIENT

DRUGS (7)
  1. BUPRENORPHINE. [Suspect]
     Active Substance: BUPRENORPHINE
     Indication: BREAKTHROUGH PAIN
     Dosage: 1.4 MG, QD, IN DIVIDED DOSES
     Route: 060
  2. OXYCODONE HYDROCHLORIDE. [Suspect]
     Active Substance: OXYCODONE HYDROCHLORIDE
     Indication: PRODUCT USED FOR UNKNOWN INDICATION
     Dosage: 5 MG, UNK
     Route: 065
  3. BUPRENORPHINE. [Suspect]
     Active Substance: BUPRENORPHINE
     Dosage: 1.6 MG, QD, IN DIVIDED DOSES
     Route: 060
  4. NALOXONE [Suspect]
     Active Substance: NALOXONE
     Dosage: 40 ?G/HR X7 HRS, INFUSION
     Route: 065
  5. NALOXONE [Suspect]
     Active Substance: NALOXONE
     Dosage: 2.2 MG, IN DIVIDED DOSES
     Route: 042
  6. PREGABALIN. [Concomitant]
     Active Substance: PREGABALIN
     Indication: PRODUCT USED FOR UNKNOWN INDICATION
     Dosage: 75 MG, BID, THREE DOSES
  7. NALOXONE [Suspect]
     Active Substance: NALOXONE
     Indication: PRODUCT USED FOR UNKNOWN INDICATION
     Dosage: 2.5 MG, UNK
     Route: 065

REACTIONS (2)
  - Respiratory depression [Recovered/Resolved]
  - Depressed level of consciousness [Recovered/Resolved]
